FAERS Safety Report 16397923 (Version 1)
Quarter: 2020Q3

REPORT INFORMATION
  Report Type: Spontaneous
  Country: GB (occurrence: GB)
  Receive Date: 20190606
  Receipt Date: 20190606
  Transmission Date: 20201104
  Serious: Yes (Other)
  Sender: FDA-Public Use
  Company Number: GB-SAMSUNG BIOEPIS-SB-2019-13380

PATIENT
  Age: 36 Year

DRUGS (2)
  1. ETORICOXIB. [Suspect]
     Active Substance: ETORICOXIB
     Indication: ANKYLOSING SPONDYLITIS
     Dosage: UNKNOWN
     Route: 048
  2. BENEPALI [Suspect]
     Active Substance: ETANERCEPT
     Indication: ANKYLOSING SPONDYLITIS
     Dosage: UNKNOWN
     Route: 065

REACTIONS (2)
  - Tinnitus [Unknown]
  - Deafness neurosensory [Unknown]
